FAERS Safety Report 8380311 (Version 2)
Quarter: 2013Q1

REPORT INFORMATION
  Report Type: Report from Study
  Country: PR (occurrence: PR)
  Receive Date: 20120129
  Receipt Date: 20130130
  Transmission Date: 20140127
  Serious: No
  Sender: FDA-Public Use
  Company Number: PR-ABBOTT-11P-131-0887115-00

PATIENT
  Sex: Female
  Weight: 50.39 kg

DRUGS (2)
  1. HUMIRA 40 MG/0.8 ML PEN [Suspect]
     Indication: SERONEGATIVE ARTHRITIS
     Route: 058
  2. VITAMIN D [Concomitant]
     Indication: OSTEOPOROSIS
     Route: 048

REACTIONS (4)
  - Unevaluable event [Recovered/Resolved]
  - Injection site cellulitis [Recovered/Resolved]
  - Injection site pruritus [Recovered/Resolved]
  - Muscle spasms [Recovered/Resolved]
